FAERS Safety Report 5395736-2 (Version None)
Quarter: 2007Q3

REPORT INFORMATION
  Report Type: 
  Country: None (occurrence: None)
  Receive Date: 20070724
  Receipt Date: 20070712
  Transmission Date: 20080115
  Serious: Yes (Death)
  Sender: FDA-Public Use
  Company Number: DE-MERCK-0707DEU00086

PATIENT
  Age: 55 Year
  Sex: Female

DRUGS (4)
  1. CANCIDAS [Suspect]
     Indication: BRONCHOPULMONARY ASPERGILLOSIS
     Route: 042
  2. MYCOPHENOLATE MOFETIL [Concomitant]
     Indication: GRAFT VERSUS HOST DISEASE
     Route: 065
  3. CORTISONE [Concomitant]
     Indication: GRAFT VERSUS HOST DISEASE
     Route: 065
  4. ANTIMICROBIAL (UNSPECIFIED) [Concomitant]
     Route: 065

REACTIONS (4)
  - BRONCHOPULMONARY ASPERGILLOSIS [None]
  - DRUG INEFFECTIVE [None]
  - DRUG RESISTANCE [None]
  - RESPIRATORY FAILURE [None]
